FAERS Safety Report 17437520 (Version 2)
Quarter: 2020Q1

REPORT INFORMATION
  Report Type: Spontaneous
  Country: FR (occurrence: FR)
  Receive Date: 20200219
  Receipt Date: 20200312
  Transmission Date: 20200409
  Serious: Yes (Other)
  Sender: FDA-Public Use
  Company Number: FR-ARRAY-2020-07384

PATIENT

DRUGS (1)
  1. BRAFTOVI [Suspect]
     Active Substance: ENCORAFENIB
     Indication: METASTATIC MALIGNANT MELANOMA
     Dosage: 300 MG, QD
     Route: 048
     Dates: start: 20200108

REACTIONS (4)
  - Dysgeusia [Recovered/Resolved]
  - Off label use [Unknown]
  - Facial paralysis [Recovered/Resolved]
  - Photosensitivity reaction [Unknown]

NARRATIVE: CASE EVENT DATE: 20200108
